FAERS Safety Report 15583282 (Version 4)
Quarter: 2019Q1

REPORT INFORMATION
  Report Type: Report from Study
  Country: US (occurrence: US)
  Receive Date: 20181103
  Receipt Date: 20190322
  Transmission Date: 20190417
  Serious: Yes (Other)
  Sender: FDA-Public Use
  Company Number: PHEH2018US046092

PATIENT
  Age: 52 Year
  Sex: Female

DRUGS (1)
  1. GILENYA [Suspect]
     Active Substance: FINGOLIMOD HYDROCHLORIDE
     Indication: RELAPSING-REMITTING MULTIPLE SCLEROSIS
     Dosage: 0.5 MG, QD
     Route: 048
     Dates: start: 20181009

REACTIONS (9)
  - Multiple sclerosis relapse [Not Recovered/Not Resolved]
  - Nasopharyngitis [Not Recovered/Not Resolved]
  - Migraine [Not Recovered/Not Resolved]
  - Gait disturbance [Unknown]
  - Influenza like illness [Not Recovered/Not Resolved]
  - Alopecia [Unknown]
  - Bladder disorder [Unknown]
  - Sensory loss [Unknown]
  - Memory impairment [Unknown]

NARRATIVE: CASE EVENT DATE: 201901
